FAERS Safety Report 4717329-X (Version None)
Quarter: 2005Q3

REPORT INFORMATION
  Report Type: 
  Country: None (occurrence: None)
  Receive Date: 20050715
  Receipt Date: 20050705
  Transmission Date: 20060218
  Serious: Yes (Hospitalization)
  Sender: FDA-Public Use
  Company Number: US-2004-028763

PATIENT
  Age: 26 Year
  Sex: Female

DRUGS (7)
  1. BETASERON [Suspect]
     Indication: MULTIPLE SCLEROSIS
     Dosage: 8 MIU, EVERY 2D, SUBCUTANEOUS
     Route: 058
     Dates: start: 20040430
  2. NEURONTIN [Concomitant]
  3. LEXAPRO [Concomitant]
  4. EFFEXOR [Concomitant]
  5. TRILEPTAL [Concomitant]
  6. FLOMAX MR ^YAMANOUCHI^ (TAMSULOSIN HYDROCHLORIDE) [Concomitant]
  7. ORTHO TRI-CYCLEN [Concomitant]

REACTIONS (2)
  - CARDIOVASCULAR DISORDER [None]
  - HYPERTRIGLYCERIDAEMIA [None]
